FAERS Safety Report 7951368-0 (Version None)
Quarter: 2011Q4

REPORT INFORMATION
  Report Type: 
  Country: None (occurrence: None)
  Receive Date: 20111129
  Receipt Date: 20111116
  Transmission Date: 20120403
  Serious: Yes (Hospitalization)
  Sender: FDA-Public Use
  Company Number: 1000023502

PATIENT
  Age: 83 Year
  Sex: Female

DRUGS (7)
  1. NAFTIDROFURYL (NAFTIDROFURYL) [Suspect]
     Dosage: (200), ORAL   SINCE LONG TIME -
     Route: 048
  2. PRAVASTATIN [Suspect]
     Dosage: (20 ), ORAL  SINCE LONG TIME -
     Route: 048
  3. ASPIRIN [Suspect]
  4. FUROSEMIDE [Suspect]
     Dosage: (20 ), ORAL  SINCE LONG TIME -
     Route: 048
  5. NOVOMIX (BIPHASIC INSULIN ASPART) (BIPHASIC INSULIN ASPART) [Concomitant]
  6. NEBIVOLOL HCL [Suspect]
     Dosage: ORAL  SINCE LONG TIME -
     Route: 048
  7. TRIMETAZIDINE (TRIMETAZIDINE) [Suspect]
     Dosage: (20 ), ORAL    SINCE LONG TIME -

REACTIONS (3)
  - ABDOMINAL PAIN UPPER [None]
  - OESOPHAGEAL ULCER [None]
  - CHEST PAIN [None]
